FAERS Safety Report 9031942 (Version 4)
Quarter: 2013Q1

REPORT INFORMATION
  Report Type: Report from Study
  Country: MY (occurrence: MY)
  Receive Date: 20130125
  Receipt Date: 20130314
  Transmission Date: 20140127
  Serious: Yes (Death, Hospitalization)
  Sender: FDA-Public Use
  Company Number: MY-PFIZER INC-2013018683

PATIENT
  Age: 65 Year
  Sex: Male
  Weight: 57.4 kg

DRUGS (3)
  1. CRIZOTINIB [Suspect]
     Indication: NON-SMALL CELL LUNG CANCER
     Dosage: 250 MG, 2X/DAY
     Dates: start: 20120827, end: 20120912
  2. CRIZOTINIB [Suspect]
     Dosage: UNK
     Dates: start: 20120920, end: 20120930
  3. CRIZOTINIB [Suspect]
     Dosage: UNK
     Dates: start: 20121011, end: 20121130

REACTIONS (4)
  - Death [Fatal]
  - Pleural effusion [Unknown]
  - Abdominal pain [Unknown]
  - Constipation [Unknown]
